FAERS Safety Report 16461494 (Version 1)
Quarter: 2019Q2

REPORT INFORMATION
  Report Type: Report from Study
  Country: US (occurrence: US)
  Receive Date: 20190621
  Receipt Date: 20190621
  Transmission Date: 20190711
  Serious: Yes (Hospitalization, Other)
  Sender: FDA-Public Use
  Company Number: US-GILEAD-2019-0414454

PATIENT
  Age: 64 Year
  Sex: Male

DRUGS (1)
  1. RANOLAZINE. [Suspect]
     Active Substance: RANOLAZINE
     Indication: ANGINA PECTORIS
     Dosage: 1000 MG, BID
     Route: 048

REACTIONS (5)
  - Localised infection [Unknown]
  - Toe amputation [Unknown]
  - Streptococcal infection [Unknown]
  - Pneumonia [Unknown]
  - Renal failure [Not Recovered/Not Resolved]
